FAERS Safety Report 5877276-7 (Version None)
Quarter: 2008Q3

REPORT INFORMATION
  Report Type: 
  Country: None (occurrence: None)
  Receive Date: 20080910
  Receipt Date: 20080904
  Transmission Date: 20090109
  Serious: Yes (Hospitalization)
  Sender: FDA-Public Use
  Company Number: US-AMGEN-QUU305714

PATIENT
  Sex: Male

DRUGS (1)
  1. ENBREL [Suspect]
     Indication: PSORIASIS
     Route: 058
     Dates: start: 20030417

REACTIONS (5)
  - ANGIOGRAM [None]
  - CALCULUS BLADDER [None]
  - CORONARY ARTERIAL STENT INSERTION [None]
  - CORONARY ARTERY OCCLUSION [None]
  - PROSTATIC DISORDER [None]
